FAERS Safety Report 5204572-9 (Version None)
Quarter: 2007Q1

REPORT INFORMATION
  Report Type: 
  Country: None (occurrence: None)
  Receive Date: 20070110
  Receipt Date: 20060511
  Transmission Date: 20070707
  Serious: No
  Sender: FDA-Public Use
  Company Number: US-BRISTOL-MYERS SQUIBB COMPANY-13375258

PATIENT
  Age: 36 Year
  Sex: Male
  Weight: 106 kg

DRUGS (2)
  1. ABILIFY [Suspect]
     Indication: SCHIZOPHRENIA
     Route: 048
  2. LIPITOR [Concomitant]

REACTIONS (3)
  - DIABETES MELLITUS [None]
  - HEPATIC ENZYME INCREASED [None]
  - WEIGHT INCREASED [None]
